FAERS Safety Report 17855736 (Version 2)
Quarter: 2025Q3

REPORT INFORMATION
  Report Type: Spontaneous
  Country: EU (occurrence: EU)
  Receive Date: 20200603
  Receipt Date: 20250714
  Transmission Date: 20251020
  Serious: Yes (Hospitalization, Other)
  Sender: MYLAN
  Company Number: EU-DAIICHI SANKYO EUROPE GMBH-DSE-2020-114577

PATIENT
  Age: 66 Year
  Sex: Male

DRUGS (12)
  1. PRASUGREL [Suspect]
     Active Substance: PRASUGREL
     Indication: Thrombosis prophylaxis
     Dosage: 10 MILLIGRAM,QD,(ONCE A DAY,FILM COATED TABLETS)
  2. PRASUGREL [Suspect]
     Active Substance: PRASUGREL
     Dosage: 10 MILLIGRAM,QD,(ONCE A DAY,FILM COATED TABLETS)
  3. PRASUGREL [Suspect]
     Active Substance: PRASUGREL
     Dosage: 10 MILLIGRAM,QD,(ONCE A DAY,FILM COATED TABLETS)
     Route: 048
  4. PRASUGREL [Suspect]
     Active Substance: PRASUGREL
     Dosage: 10 MILLIGRAM,QD,(ONCE A DAY,FILM COATED TABLETS)
     Route: 048
  5. PRASUGREL [Suspect]
     Active Substance: PRASUGREL
     Dosage: 20 MILLIGRAM, QD,(FILM-COATED TABLET,20 MILLIGRAM, DAILY (10 MG, BID))
  6. PRASUGREL [Suspect]
     Active Substance: PRASUGREL
     Dosage: 20 MILLIGRAM, QD,(FILM-COATED TABLET,20 MILLIGRAM, DAILY (10 MG, BID))
  7. PRASUGREL [Suspect]
     Active Substance: PRASUGREL
     Dosage: 20 MILLIGRAM, QD,(FILM-COATED TABLET,20 MILLIGRAM, DAILY (10 MG, BID))
     Route: 048
  8. PRASUGREL [Suspect]
     Active Substance: PRASUGREL
     Dosage: 20 MILLIGRAM, QD,(FILM-COATED TABLET,20 MILLIGRAM, DAILY (10 MG, BID))
     Route: 048
  9. HEPARIN [Concomitant]
     Active Substance: HEPARIN SODIUM
     Indication: Thrombosis prophylaxis
  10. HEPARIN [Concomitant]
     Active Substance: HEPARIN SODIUM
     Route: 042
  11. HEPARIN [Concomitant]
     Active Substance: HEPARIN SODIUM
     Route: 042
  12. HEPARIN [Concomitant]
     Active Substance: HEPARIN SODIUM

REACTIONS (1)
  - Brain stem infarction [Unknown]
